FAERS Safety Report 25732736 (Version 2)
Quarter: 2025Q3

REPORT INFORMATION
  Report Type: Spontaneous
  Country: JP (occurrence: None)
  Receive Date: 20250827
  Receipt Date: 20250930
  Transmission Date: 20251021
  Serious: Yes (Other)
  Sender: ORGANON
  Company Number: JP-ORGANON-O2508JPN001977

PATIENT
  Sex: Female

DRUGS (3)
  1. GANIREST [Suspect]
     Active Substance: GANIRELIX ACETATE
     Indication: Anovulatory cycle
  2. FOLLITROPIN ALFA [Suspect]
     Active Substance: FOLLITROPIN ALFA
     Dates: start: 20250813, end: 20250814
  3. FOLLITROPIN ALFA [Suspect]
     Active Substance: FOLLITROPIN ALFA
     Dates: start: 20250815, end: 20250820

REACTIONS (3)
  - Loss of consciousness [Recovered/Resolved]
  - Skin laceration [Recovered/Resolved]
  - Ligament sprain [Recovered/Resolved]

NARRATIVE: CASE EVENT DATE: 20250820
